FAERS Safety Report 17665729 (Version 1)
Quarter: 2020Q2

REPORT INFORMATION
  Report Type: Spontaneous
  Country: FR (occurrence: FR)
  Receive Date: 20200414
  Receipt Date: 20200414
  Transmission Date: 20200713
  Serious: Yes (Death)
  Sender: FDA-Public Use
  Company Number: NVSC2020FR099053

PATIENT
  Sex: Male

DRUGS (16)
  1. SELENIUM [Suspect]
     Active Substance: SELENIUM
     Indication: PARENTERAL NUTRITION
     Dosage: 10 ML
     Route: 051
  2. GLUCO-CALCIUM [Suspect]
     Active Substance: CALCIUM\DEXTROSE
     Indication: PARENTERAL NUTRITION
     Dosage: GLUCO CA 500ML 10%
     Route: 051
  3. CERNEVIT [Suspect]
     Active Substance: VITAMINS
     Indication: PARENTERAL NUTRITION
     Dosage: 5 ML
     Route: 051
  4. SODIUM LACTATE. [Suspect]
     Active Substance: SODIUM LACTATE
     Indication: PARENTERAL NUTRITION
     Dosage: 150 ML
     Route: 051
  5. POTASSIUM CHLORIDE. [Suspect]
     Active Substance: POTASSIUM CHLORIDE
     Indication: PARENTERAL NUTRITION
     Dosage: POTASSIUM CHLORIDE 10% 500ML
     Route: 051
  6. EPHYNAL [Suspect]
     Active Substance: .ALPHA.-TOCOPHEROL ACETATE
     Indication: PARENTERAL NUTRITION
     Dosage: 2 ML
     Route: 051
  7. SMOFKABIVEN [Suspect]
     Active Substance: AMINO ACIDS\DEXTROSE\ELECTROLYTES NOS\SOYBEAN OIL
     Indication: PARENTERAL NUTRITION
     Dosage: 250 ML
     Route: 051
  8. EAU POUR PREPARATIONS INJECTABLES [Suspect]
     Active Substance: WATER
     Indication: PARENTERAL NUTRITION
     Dosage: 1570 ML
     Route: 051
  9. SODIUM CHLORIDE. [Suspect]
     Active Substance: SODIUM CHLORIDE
     Indication: PARENTERAL NUTRITION
     Dosage: SODIUM CHLORIDE 20% 500ML
     Route: 051
  10. L CARNITINE [Suspect]
     Active Substance: LEVOCARNITINE
     Indication: PARENTERAL NUTRITION
     Route: 051
  11. PHOCYTAN [Suspect]
     Active Substance: .ALPHA.-GLUCOSE-1-PHOSPHATE
     Indication: PARENTERAL NUTRITION
     Route: 051
  12. GLUCOSE [Suspect]
     Active Substance: DEXTROSE
     Indication: PARENTERAL NUTRITION
     Dosage: 400 ML
     Route: 051
  13. ZINC. [Suspect]
     Active Substance: ZINC
     Indication: PARENTERAL NUTRITION
     Dosage: 20 ML
     Route: 051
  14. VINTENE [Suspect]
     Active Substance: AMINO ACIDS, SOURCE UNSPECIFIED
     Indication: PARENTERAL NUTRITION
     Dosage: 800 ML
     Route: 051
  15. VIT K1 [Suspect]
     Active Substance: PHYTONADIONE
     Indication: PARENTERAL NUTRITION
     Dosage: 1 ML
     Route: 051
  16. MAGNESIUM [Suspect]
     Active Substance: MAGNESIUM
     Indication: PARENTERAL NUTRITION
     Dosage: 33 ML
     Route: 051

REACTIONS (1)
  - Cardiac failure [Fatal]
